FAERS Safety Report 10537816 (Version 3)
Quarter: 2015Q4

REPORT INFORMATION
  Report Type: Spontaneous
  Country: MX (occurrence: MX)
  Receive Date: 20141023
  Receipt Date: 20151009
  Transmission Date: 20160304
  Serious: Yes (Other)
  Sender: FDA-Public Use
  Company Number: MX-ELI_LILLY_AND_COMPANY-MX201408005518

PATIENT
  Age: 47 Year
  Sex: Female
  Weight: 105 kg

DRUGS (8)
  1. HUMALOG MIX75/25 [Suspect]
     Active Substance: INSULIN LISPRO
     Indication: TYPE 2 DIABETES MELLITUS
     Dosage: 72 IU, EACH MORNING
     Route: 065
     Dates: start: 201308
  2. METFORMIN [Concomitant]
     Active Substance: METFORMIN HYDROCHLORIDE
     Dosage: 850 MG, TID
     Route: 065
  3. HUMALOG MIX75/25 [Suspect]
     Active Substance: INSULIN LISPRO
     Dosage: 28 IU, EACH EVENING
     Route: 065
     Dates: start: 201308
  4. HUMALOG MIX75/25 [Suspect]
     Active Substance: INSULIN LISPRO
     Dosage: 30 IU, EACH EVENING
     Route: 065
     Dates: start: 201410
  5. HUMALOG MIX75/25 [Suspect]
     Active Substance: INSULIN LISPRO
     Dosage: 70 IU, EACH MORNING
     Route: 065
  6. HUMALOG MIX75/25 [Suspect]
     Active Substance: INSULIN LISPRO
     Dosage: 75 IU, EACH MORNING
     Route: 065
     Dates: start: 201410
  7. INSULIN [Concomitant]
     Active Substance: INSULIN NOS
  8. ACARBOSE. [Concomitant]
     Active Substance: ACARBOSE

REACTIONS (3)
  - Weight increased [Recovering/Resolving]
  - Blood glucose increased [Unknown]
  - Drug dose omission [Unknown]

NARRATIVE: CASE EVENT DATE: 201407
